FAERS Safety Report 8942031 (Version 2)
Quarter: 2012Q4

REPORT INFORMATION
  Report Type: Report from Study
  Country: US (occurrence: US)
  Receive Date: 20121130
  Receipt Date: 20121226
  Transmission Date: 20130627
  Serious: Yes (Other)
  Sender: FDA-Public Use
  Company Number: US-ABBOTT-12P-163-1012864-00

PATIENT
  Age: 54 Year
  Sex: Male

DRUGS (2)
  1. HUMIRA PEN [Suspect]
     Indication: CROHN^S DISEASE
     Dates: start: 20120720, end: 20121026
  2. HUMIRA PEN [Suspect]

REACTIONS (2)
  - Gastrointestinal inflammation [Recovering/Resolving]
  - Drug effect incomplete [Recovering/Resolving]
